FAERS Safety Report 17186617 (Version 1)
Quarter: 2019Q4

REPORT INFORMATION
  Report Type: Spontaneous
  Country: FR (occurrence: FR)
  Receive Date: 20191220
  Receipt Date: 20191220
  Transmission Date: 20200122
  Serious: Yes (Hospitalization)
  Sender: FDA-Public Use
  Company Number: FR-TAIHO ONCOLOGY  INC-IM-2019-00712

PATIENT
  Age: 75 Year
  Sex: Male

DRUGS (2)
  1. LONSURF [Suspect]
     Active Substance: TIPIRACIL HYDROCHLORIDE\TRIFLURIDINE
     Indication: COLORECTAL CANCER METASTATIC
     Dosage: 75 MG (UNK MG/M2) BID ORALLY ON DAYS 1-5 AND 8-12 OF EACH 28-DAY CYCLE
     Route: 048
     Dates: start: 20191130, end: 20191130
  2. LONSURF [Suspect]
     Active Substance: TIPIRACIL HYDROCHLORIDE\TRIFLURIDINE
     Dosage: 75 MG (UNK MG/M2) BID ORALLY ON DAYS 1-5 AND 8-12 OF EACH 28-DAY CYCLE
     Route: 048
     Dates: start: 201912, end: 20191207

REACTIONS (1)
  - Cardiac failure [Recovering/Resolving]

NARRATIVE: CASE EVENT DATE: 20191130
